FAERS Safety Report 9545370 (Version 1)
Quarter: 2013Q3

REPORT INFORMATION
  Report Type: Spontaneous
  Country: US (occurrence: US)
  Receive Date: 20130923
  Receipt Date: 20130923
  Transmission Date: 20140515
  Serious: No
  Sender: FDA-Public Use
  Company Number: US-GLAXOSMITHKLINE-A1007811A

PATIENT
  Age: 51 Year
  Sex: Female

DRUGS (4)
  1. ABREVA [Suspect]
     Indication: ORAL HERPES
     Dates: start: 2000
  2. UNSPECIFIED CREAM [Concomitant]
  3. VALTREX [Concomitant]
  4. DENAVIR [Concomitant]

REACTIONS (1)
  - Drug administration error [Unknown]
